FAERS Safety Report 4670119-9 (Version None)
Quarter: 2005Q2

REPORT INFORMATION
  Report Type: 
  Country: None (occurrence: None)
  Receive Date: 20050523
  Receipt Date: 20050509
  Transmission Date: 20051028
  Serious: Yes (Death, Hospitalization)
  Sender: FDA-Public Use
  Company Number: 214347

PATIENT
  Age: 54 Year
  Sex: Female
  Weight: 87 kg

DRUGS (12)
  1. BEVACIZUMAB OR PLACEBO (BEVACIZUMAB OR PLACEBO ) PWDR + SOLVENT, INFUS [Suspect]
     Indication: PANCREATIC CARCINOMA
     Dosage: 10 MG/KG, DAYS 1+15, INTRAVENOUS
     Route: 042
     Dates: start: 20050407, end: 20050407
  2. GEMCITABINE (GEMCITABINE HYDROCHLORIDE) [Suspect]
     Indication: PANCREATIC CARCINOMA
     Dosage: 1000 MG/KG, DAYS 1, 8, 15; INTRAVENOUS
     Route: 042
     Dates: start: 20050407, end: 20050407
  3. LOVENOX [Concomitant]
  4. AMBIEN [Concomitant]
  5. PERCOCET (ACETAMINOPHE, OXYCODONE HYDROCHLORIDE) [Concomitant]
  6. ZOLOFT [Concomitant]
  7. TOPROL-XL [Concomitant]
  8. ASPIRIN [Concomitant]
  9. METFORMIN HCL [Concomitant]
  10. ALTACE [Concomitant]
  11. LIPITOR [Concomitant]
  12. LANTUS [Concomitant]

REACTIONS (12)
  - BLOOD PRESSURE DECREASED [None]
  - CYANOSIS [None]
  - DISSEMINATED INTRAVASCULAR COAGULATION [None]
  - HEART RATE INCREASED [None]
  - HYPOTENSION [None]
  - LIVEDO RETICULARIS [None]
  - LIVER DISORDER [None]
  - LUNG DISORDER [None]
  - MULTI-ORGAN FAILURE [None]
  - PAIN [None]
  - RENAL DISORDER [None]
  - SEPTIC SHOCK [None]
